FAERS Safety Report 25719044 (Version 1)
Quarter: 2025Q3

REPORT INFORMATION
  Report Type: Spontaneous
  Country: US (occurrence: US)
  Receive Date: 20250823
  Receipt Date: 20250823
  Transmission Date: 20251021
  Serious: Yes (Other)
  Sender: MACLEODS
  Company Number: US-MLMSERVICE-20250811-PI603797-00057-2

PATIENT

DRUGS (7)
  1. ATORVASTATIN [Suspect]
     Active Substance: ATORVASTATIN
     Indication: Product used for unknown indication
     Route: 065
     Dates: end: 2024
  2. AZATHIOPRINE [Concomitant]
     Active Substance: AZATHIOPRINE
     Route: 065
  3. PREDNISONE [Concomitant]
     Active Substance: PREDNISONE
     Route: 065
  4. ANIFROLUMAB [Concomitant]
     Active Substance: ANIFROLUMAB
     Dosage: Q4 WEEKS
     Route: 065
  5. ANIFROLUMAB [Concomitant]
     Active Substance: ANIFROLUMAB
  6. METHOTREXATE [Concomitant]
     Active Substance: METHOTREXATE
     Route: 065
  7. UPADACITINIB [Concomitant]
     Active Substance: UPADACITINIB
     Route: 065
     Dates: start: 2024

REACTIONS (3)
  - Condition aggravated [Recovering/Resolving]
  - Blood creatine phosphokinase increased [Recovering/Resolving]
  - Hypertransaminasaemia [Unknown]

NARRATIVE: CASE EVENT DATE: 20240101
